FAERS Safety Report 12298594 (Version 1)
Quarter: 2016Q2

REPORT INFORMATION
  Report Type: Spontaneous
  Country: US (occurrence: US)
  Receive Date: 20160425
  Receipt Date: 20160425
  Transmission Date: 20160815
  Serious: No
  Sender: FDA-Public Use
  Company Number: US-BIOGEN-2016BI00221918

PATIENT

DRUGS (2)
  1. AVONEX [Suspect]
     Active Substance: INTERFERON BETA-1A
     Indication: MULTIPLE SCLEROSIS
  2. GILENYA [Concomitant]
     Active Substance: FINGOLIMOD HYDROCHLORIDE
     Dosage: 1 PILL AT NIGHT

REACTIONS (7)
  - Dyspnoea [Unknown]
  - Influenza like illness [Unknown]
  - Injection site pain [Unknown]
  - Migraine [Unknown]
  - Fatigue [Unknown]
  - Fear [Unknown]
  - Anxiety [Unknown]
